FAERS Safety Report 11552384 (Version 1)
Quarter: 2015Q3

REPORT INFORMATION
  Report Type: Spontaneous
  Country: US (occurrence: US)
  Receive Date: 20150925
  Receipt Date: 20150925
  Transmission Date: 20151125
  Serious: No
  Sender: FDA-Public Use
  Company Number: US-PFIZER INC-2015317826

PATIENT
  Age: 50 Year
  Sex: Female

DRUGS (8)
  1. SUMATRIPTAN SUCCINATE. [Concomitant]
     Active Substance: SUMATRIPTAN SUCCINATE
     Dosage: UNK
  2. ALLERGA [Concomitant]
     Dosage: UNK
  3. FOLIC ACID. [Concomitant]
     Active Substance: FOLIC ACID
     Dosage: UNK
  4. ALBUTEROL SULFATE. [Concomitant]
     Active Substance: ALBUTEROL SULFATE
     Dosage: UNK
  5. ZOCOR [Concomitant]
     Active Substance: SIMVASTATIN
     Dosage: UNK
  6. TRIAMCINOLONE ACETONIDE. [Concomitant]
     Active Substance: TRIAMCINOLONE ACETONIDE
     Dosage: UNK
  7. XELJANZ [Suspect]
     Active Substance: TOFACITINIB CITRATE
     Indication: RHEUMATOID ARTHRITIS
     Dosage: 5 MG, 2X/DAY
     Route: 048
     Dates: start: 201507
  8. METHOTREXATE [Concomitant]
     Active Substance: METHOTREXATE
     Dosage: UNK

REACTIONS (1)
  - Rash [Unknown]

NARRATIVE: CASE EVENT DATE: 2015
